FAERS Safety Report 7521221-5 (Version None)
Quarter: 2011Q2

REPORT INFORMATION
  Report Type: 
  Country: None (occurrence: None)
  Receive Date: 20110524
  Receipt Date: 20110512
  Transmission Date: 20111010
  Serious: Yes (Death, Other)
  Sender: FDA-Public Use
  Company Number: JPI-P-014779

PATIENT
  Age: 72 Year
  Sex: Male

DRUGS (8)
  1. XYREM [Suspect]
     Indication: CATAPLEXY
     Dosage: 45GM (2.25 GM, 2 IN  1 D),ORAL
     Route: 048
     Dates: start: 20030317, end: 20080504
  2. TRAMADOL HCL [Concomitant]
  3. HALOPERIDOL [Concomitant]
  4. ASPIRIN [Concomitant]
  5. FLURAZEPAM [Concomitant]
  6. CLOPIDOGREL [Concomitant]
  7. ESOMEPRAZOLE MAGNESIUM [Concomitant]
  8. QUETIAPINE [Concomitant]

REACTIONS (3)
  - DEMENTIA [None]
  - HYDROCEPHALUS [None]
  - CONVULSION [None]
